FAERS Safety Report 9391093 (Version 1)
Quarter: 2013Q3

REPORT INFORMATION
  Report Type: Spontaneous
  Country: US (occurrence: None)
  Receive Date: 20130705
  Receipt Date: 20130705
  Transmission Date: 20140515
  Serious: Yes (Hospitalization)
  Sender: FDA-Public Use
  Company Number: None

PATIENT
  Age: 80 Year
  Sex: Male
  Weight: 117.4 kg

DRUGS (1)
  1. CISPLATIN [Suspect]
     Route: 042
     Dates: start: 20130307, end: 20130307

REACTIONS (2)
  - Renal impairment [None]
  - Blood creatinine increased [None]
